FAERS Safety Report 4462520-3 (Version None)
Quarter: 2004Q3

REPORT INFORMATION
  Report Type: 
  Country: None (occurrence: None)
  Receive Date: 20040928
  Receipt Date: 20040913
  Transmission Date: 20050211
  Serious: Yes (Hospitalization, Other)
  Sender: FDA-Public Use
  Company Number: 2004057592

PATIENT
  Age: 71 Year
  Sex: Male
  Weight: 62.7 kg

DRUGS (7)
  1. NORVASC [Suspect]
     Indication: HYPERTENSION
     Dosage: 2.5 MG (1 IN 1 D), ORAL
     Route: 048
     Dates: start: 20000501
  2. CARVEDILOL [Suspect]
     Indication: ATRIAL FIBRILLATION
     Dosage: 25 MG (2.5 MG 1 IN 1 D), ORAL
     Route: 048
     Dates: start: 20040706, end: 20040806
  3. TEPRENONE (TEPRENONE) [Suspect]
     Indication: GASTRITIS
     Dosage: 150 MG (50 MG, 3 IN 1 D), ORAL
     Route: 048
     Dates: start: 20040706, end: 20040824
  4. PREDNISOLONE [Suspect]
     Indication: ANAEMIA HAEMOLYTIC AUTOIMMUNE
     Dosage: 60 MG (3 IN 1 D), ORAL
     Route: 048
     Dates: start: 20040706, end: 20040802
  5. DISOPYRAMIDE [Suspect]
     Indication: ATRIAL FIBRILLATION
     Dates: start: 20001101, end: 20040702
  6. URSODEXYCHOLIC ACID (URSODEXYCHOLIC ACID) [Concomitant]
  7. ISOSORBIDE DINITRATE [Concomitant]

REACTIONS (6)
  - ANAEMIA HAEMOLYTIC AUTOIMMUNE [None]
  - ATRIAL FIBRILLATION [None]
  - COLONIC POLYP [None]
  - GASTRITIS [None]
  - HYPERTENSION [None]
  - PLATELET COUNT DECREASED [None]
